FAERS Safety Report 25810200 (Version 1)
Quarter: 2025Q3

REPORT INFORMATION
  Report Type: Spontaneous
  Country: US (occurrence: US)
  Receive Date: 20250917
  Receipt Date: 20250917
  Transmission Date: 20251021
  Serious: No
  Sender: ROCHE
  Company Number: US-ROCHE-10000388507

PATIENT
  Age: 69 Year
  Sex: Female

DRUGS (13)
  1. RITUXIMAB [Suspect]
     Active Substance: RITUXIMAB
     Indication: Granulomatosis with polyangiitis
     Route: 065
     Dates: start: 201406
  2. PREDNISONE [Concomitant]
     Active Substance: PREDNISONE
     Route: 048
  3. MINOXIDIL [Concomitant]
     Active Substance: MINOXIDIL
     Route: 061
  4. MINOXIDIL [Concomitant]
     Active Substance: MINOXIDIL
     Route: 048
  5. TRIAMCINOLONE [Concomitant]
     Active Substance: TRIAMCINOLONE
     Route: 026
  6. CLOBETASOL [Concomitant]
     Active Substance: CLOBETASOL
     Route: 061
  7. BARICITINIB [Concomitant]
     Active Substance: BARICITINIB
  8. BARICITINIB [Concomitant]
     Active Substance: BARICITINIB
     Dates: start: 202208
  9. AZATHIOPRINE [Concomitant]
     Active Substance: AZATHIOPRINE
     Dates: start: 201408
  10. METHOTREXATE [Concomitant]
     Active Substance: METHOTREXATE
     Dates: start: 201403
  11. METHOTREXATE [Concomitant]
     Active Substance: METHOTREXATE
  12. LEFLUNOMIDE [Concomitant]
     Active Substance: LEFLUNOMIDE
  13. ABATACEPT [Concomitant]
     Active Substance: ABATACEPT
     Route: 048
     Dates: start: 202109, end: 202208

REACTIONS (6)
  - Insomnia [Unknown]
  - Ear pain [Unknown]
  - Headache [Unknown]
  - Flushing [Unknown]
  - Feeling jittery [Unknown]
  - Nausea [Unknown]
